FAERS Safety Report 20222177 (Version 1)
Quarter: 2021Q4

REPORT INFORMATION
  Report Type: Spontaneous
  Country: DE (occurrence: DE)
  Receive Date: 20211223
  Receipt Date: 20211223
  Transmission Date: 20220303
  Serious: Yes (Other)
  Sender: FDA-Public Use
  Company Number: DE-BAYER-2021A270101

PATIENT
  Age: 58 Year
  Sex: Female

DRUGS (4)
  1. GADOBUTROL [Suspect]
     Active Substance: GADOBUTROL
     Indication: Magnetic resonance imaging abdominal
     Dosage: 7 ML, ONCE
     Dates: start: 20130725, end: 20130725
  2. GADOBUTROL [Suspect]
     Active Substance: GADOBUTROL
     Indication: Magnetic resonance imaging abdominal
     Dosage: 7 ML, ONCE
     Dates: start: 20170203, end: 20170203
  3. GADOBUTROL [Suspect]
     Active Substance: GADOBUTROL
     Indication: Magnetic resonance imaging
     Dosage: 7 ML ONCE
     Dates: start: 20171109, end: 20171109
  4. GADOBUTROL [Suspect]
     Active Substance: GADOBUTROL
     Indication: Magnetic resonance imaging
     Dosage: 7 ML ONCE
     Dates: start: 20180627, end: 20180627

REACTIONS (66)
  - Contrast media toxicity [Not Recovered/Not Resolved]
  - Hypertensive crisis [Recovered/Resolved]
  - Quadriparesis [Recovered/Resolved]
  - Loss of consciousness [Recovered/Resolved]
  - Muscle spasticity [Recovered/Resolved]
  - Hemianaesthesia [None]
  - Vitreous haemorrhage [None]
  - Photopsia [None]
  - General physical health deterioration [None]
  - Gait disturbance [None]
  - Intraocular pressure increased [None]
  - Hypoaesthesia [None]
  - Renal pain [None]
  - Asthenia [Not Recovered/Not Resolved]
  - Fatigue [Not Recovered/Not Resolved]
  - Sleep disorder [Not Recovered/Not Resolved]
  - Dyspnoea [Not Recovered/Not Resolved]
  - Disturbance in attention [Not Recovered/Not Resolved]
  - Headache [Not Recovered/Not Resolved]
  - Alopecia [Not Recovered/Not Resolved]
  - Tinnitus [Not Recovered/Not Resolved]
  - Skin burning sensation [Not Recovered/Not Resolved]
  - Myalgia [Not Recovered/Not Resolved]
  - Muscle twitching [Not Recovered/Not Resolved]
  - Dysphagia [Not Recovered/Not Resolved]
  - Choking sensation [None]
  - Stomatitis [Not Recovered/Not Resolved]
  - Cough [Not Recovered/Not Resolved]
  - Laryngitis [None]
  - Hypoaesthesia [Not Recovered/Not Resolved]
  - Sensory disturbance [Not Recovered/Not Resolved]
  - Gait disturbance [Not Recovered/Not Resolved]
  - Fall [Not Recovered/Not Resolved]
  - Gastrointestinal disorder [Not Recovered/Not Resolved]
  - Dyspnoea [Not Recovered/Not Resolved]
  - Blood pressure fluctuation [Not Recovered/Not Resolved]
  - Visual impairment [None]
  - Dizziness [Not Recovered/Not Resolved]
  - Cognitive disorder [Not Recovered/Not Resolved]
  - Chest pain [Not Recovered/Not Resolved]
  - Conjunctivitis [Not Recovered/Not Resolved]
  - Hyperhidrosis [None]
  - Pain in extremity [Not Recovered/Not Resolved]
  - Injection site inflammation [Not Recovered/Not Resolved]
  - Cardiovascular disorder [None]
  - Urinary incontinence [Not Recovered/Not Resolved]
  - Depression [None]
  - Impaired work ability [None]
  - Vertigo [None]
  - Balance disorder [None]
  - Pain [None]
  - Thermoanaesthesia [None]
  - Ageusia [None]
  - Blood pressure fluctuation [None]
  - Palpitations [None]
  - Nausea [None]
  - Panic reaction [None]
  - Generalised oedema [None]
  - Vomiting [None]
  - Erythema [None]
  - Urticaria [None]
  - Pruritus [None]
  - Chills [None]
  - Tremor [None]
  - Nontherapeutic agent blood positive [None]
  - Nontherapeutic agent urine positive [None]

NARRATIVE: CASE EVENT DATE: 20131101
